FAERS Safety Report 11196862 (Version 1)
Quarter: 2015Q2

REPORT INFORMATION
  Report Type: Spontaneous
  Country: ES (occurrence: ES)
  Receive Date: 20150617
  Receipt Date: 20150617
  Transmission Date: 20150821
  Serious: Yes (Hospitalization)
  Sender: FDA-Public Use
  Company Number: PHHY2015ES068615

PATIENT
  Age: 11 Year
  Sex: Female

DRUGS (2)
  1. HYDROXYCHLOROQUINE [Suspect]
     Active Substance: HYDROXYCHLOROQUINE
     Indication: SYSTEMIC LUPUS ERYTHEMATOSUS
     Dosage: UNK
     Route: 065
  2. MYCOPHENOLIC ACID. [Suspect]
     Active Substance: MYCOPHENOLIC ACID
     Indication: SYSTEMIC LUPUS ERYTHEMATOSUS
     Route: 065

REACTIONS (5)
  - Oral papilloma [Unknown]
  - Hyperplasia [Recovered/Resolved]
  - Papilloma viral infection [Recovered/Resolved]
  - Oral disorder [Recovered/Resolved]
  - Oral papule [Recovered/Resolved]
